FAERS Safety Report 11155635 (Version 1)
Quarter: 2015Q2

REPORT INFORMATION
  Report Type: Spontaneous
  Country: NO (occurrence: NO)
  Receive Date: 20150602
  Receipt Date: 20150602
  Transmission Date: 20150821
  Serious: Yes (Other)
  Sender: FDA-Public Use
  Company Number: NO-PFIZER INC-2015182818

PATIENT
  Age: 79 Year
  Sex: Male

DRUGS (3)
  1. TOSTRAN [Concomitant]
     Dosage: UNK
     Route: 061
  2. XARELTO [Concomitant]
     Active Substance: RIVAROXABAN
     Indication: ATRIAL FIBRILLATION
     Dosage: 20 MG, 1X/DAY
     Route: 048
  3. DOSTINEX [Suspect]
     Active Substance: CABERGOLINE
     Indication: PROLACTINOMA
     Dosage: 0.5 MG, 2X/WEEK
     Route: 048
     Dates: start: 2012, end: 2014

REACTIONS (2)
  - Tricuspid valve stenosis [Not Recovered/Not Resolved]
  - Tricuspid valve disease [Not Recovered/Not Resolved]

NARRATIVE: CASE EVENT DATE: 201502
